FAERS Safety Report 9993311 (Version 1)
Quarter: 2014Q1

REPORT INFORMATION
  Report Type: Spontaneous
  Country: GB (occurrence: GB)
  Receive Date: 20140310
  Receipt Date: 20140310
  Transmission Date: 20141002
  Serious: Yes (Hospitalization)
  Sender: FDA-Public Use
  Company Number: GB-TEVA-465524ISR

PATIENT
  Age: 41 Year
  Sex: Male

DRUGS (10)
  1. LACTULOSE [Suspect]
     Indication: CONSTIPATION
     Route: 048
     Dates: start: 20140127, end: 20140128
  2. CODEINE [Concomitant]
  3. DOXYCYCLINE [Concomitant]
     Indication: PNEUMONIA
  4. ENOXAPARIN [Concomitant]
  5. FELODIPINE [Concomitant]
  6. IRBESARTAN [Concomitant]
  7. OMEPRAZOLE [Concomitant]
  8. PARACETAMOL [Concomitant]
  9. PIZOTIFEN [Concomitant]
  10. WARFARIN [Concomitant]

REACTIONS (2)
  - Haematemesis [Recovered/Resolved]
  - Nausea [Recovered/Resolved]
